FAERS Safety Report 9691650 (Version 2)
Quarter: 2013Q4

REPORT INFORMATION
  Report Type: Spontaneous
  Country: JP (occurrence: JP)
  Receive Date: 20131115
  Receipt Date: 20131127
  Transmission Date: 20140711
  Serious: Yes (Hospitalization, Other)
  Sender: FDA-Public Use
  Company Number: JP-009507513-1311JPN006484

PATIENT
  Age: 83 Year
  Sex: Female

DRUGS (2)
  1. FOSAMAC TABLETS 35MG [Suspect]
     Indication: OSTEOPOROSIS
     Dosage: DAILY DOSE UNKNOWN
     Route: 048
  2. ADRENAL HORMONE PREPARATION [Concomitant]
     Indication: SARCOIDOSIS
     Dosage: DAILY DOSE UNKNOWN
     Route: 065

REACTIONS (2)
  - Intramedullary rod insertion [Recovered/Resolved]
  - Atypical femur fracture [Recovered/Resolved]
